FAERS Safety Report 6894394-5 (Version None)
Quarter: 2010Q3

REPORT INFORMATION
  Report Type: 
  Country: None (occurrence: None)
  Receive Date: 20100708
  Receipt Date: 20090710
  Transmission Date: 20110219
  Serious: Yes (Other)
  Sender: FDA-Public Use
  Company Number: 2009220294

PATIENT
  Age: 64 Year
  Sex: Male
  Weight: 105.2 kg

DRUGS (8)
  1. CHANTIX [Suspect]
     Indication: SMOKING CESSATION THERAPY
     Dosage: 0.5 MG, 2X/DAY, ORAL
     Route: 048
     Dates: start: 20090507
  2. ZOCOR [Concomitant]
  3. HYDROCHLOROTHIAZIDE [Concomitant]
  4. LISINOPRIL [Concomitant]
  5. TRICOR [Concomitant]
  6. LOPRESSOR [Concomitant]
  7. ASPIRIN [Concomitant]
  8. SEE IMAGE [Concomitant]

REACTIONS (1)
  - BLOOD PRESSURE INCREASED [None]
